FAERS Safety Report 6106436-5 (Version None)
Quarter: 2009Q1

REPORT INFORMATION
  Report Type: 
  Country: None (occurrence: None)
  Receive Date: 20090306
  Receipt Date: 20090223
  Transmission Date: 20090719
  Serious: Yes (Death)
  Sender: FDA-Public Use
  Company Number: US-WATSON-2009-01343

PATIENT
  Sex: Female

DRUGS (5)
  1. ACETAMINOPHEN AND CODEINE PHOSPHATE [Suspect]
     Indication: PAIN
     Dosage: UNK
     Route: 065
     Dates: start: 19870101
  2. XANAX [Suspect]
     Indication: PAIN
     Dosage: UNK
     Route: 065
     Dates: start: 19870101
  3. OXYCONTIN [Suspect]
     Indication: PAIN
     Dosage: UNK
     Route: 065
     Dates: start: 19870101
  4. PERCOCET [Suspect]
     Indication: PAIN
     Dosage: UNK
     Route: 065
     Dates: start: 19870101
  5. ANTIDEPRESSANTS [Suspect]
     Indication: DRUG USE FOR UNKNOWN INDICATION
     Dosage: UNK
     Route: 065
     Dates: start: 19870101

REACTIONS (2)
  - COMPLETED SUICIDE [None]
  - OVERDOSE [None]
